FAERS Safety Report 10014832 (Version 1)
Quarter: 2014Q1

REPORT INFORMATION
  Report Type: Spontaneous
  Country: JP (occurrence: JP)
  Receive Date: 20140317
  Receipt Date: 20140317
  Transmission Date: 20141002
  Serious: Yes (Other)
  Sender: FDA-Public Use
  Company Number: JP-009507513-1403JPN007592

PATIENT
  Age: 37 Year
  Sex: Female

DRUGS (2)
  1. ORGARAN INTRAVENOUS 1250 UNITS [Suspect]
     Indication: HABITUAL ABORTION
     Route: 058
  2. PICIBANIL [Concomitant]
     Indication: HABITUAL ABORTION
     Route: 058

REACTIONS (2)
  - Abortion spontaneous [Unknown]
  - Maternal exposure during pregnancy [Recovered/Resolved]
